FAERS Safety Report 16235103 (Version 1)
Quarter: 2019Q2

REPORT INFORMATION
  Report Type: Spontaneous
  Country: CN (occurrence: CN)
  Receive Date: 20190424
  Receipt Date: 20190424
  Transmission Date: 20190711
  Serious: Yes (Other)
  Sender: FDA-Public Use
  Company Number: CN-PFIZER INC-2019171734

PATIENT

DRUGS (1)
  1. EFFEXOR XR [Suspect]
     Active Substance: VENLAFAXINE HYDROCHLORIDE
     Dosage: 1 DF, DAILY
     Route: 048
     Dates: start: 20190401, end: 201904

REACTIONS (7)
  - Coma [Recovered/Resolved]
  - Decreased appetite [Unknown]
  - Tachypnoea [Unknown]
  - Seizure [Unknown]
  - Suicidal ideation [Unknown]
  - Dyspnoea [Unknown]
  - Mood altered [Unknown]

NARRATIVE: CASE EVENT DATE: 201904
